FAERS Safety Report 8239815-0 (Version None)
Quarter: 2012Q1

REPORT INFORMATION
  Report Type: 
  Country: None (occurrence: None)
  Receive Date: 20120328
  Receipt Date: 20120322
  Transmission Date: 20120608
  Serious: Yes (Hospitalization, Other)
  Sender: FDA-Public Use
  Company Number: DE-ASTELLAS-2012EU002110

PATIENT
  Age: 80 Year
  Sex: Female

DRUGS (1)
  1. PROTOPIC [Suspect]
     Indication: LICHEN SCLEROSUS
     Dosage: 0.1 %, BID
     Route: 061
     Dates: start: 20081201, end: 20111001

REACTIONS (2)
  - VULVAL CANCER [None]
  - OFF LABEL USE [None]
